FAERS Safety Report 7420875-1 (Version None)
Quarter: 2011Q2

REPORT INFORMATION
  Report Type: 
  Country: None (occurrence: None)
  Receive Date: 20110418
  Receipt Date: 20110413
  Transmission Date: 20111010
  Serious: Yes (Death, Hospitalization)
  Sender: FDA-Public Use
  Company Number: A0864565A

PATIENT
  Age: 79 Year
  Sex: Male

DRUGS (3)
  1. PROMACTA [Suspect]
     Indication: THROMBOCYTOPENIA
     Dosage: 75MG PER DAY
     Route: 048
     Dates: end: 20100511
  2. IMMUNE GLOBULIN INTRAVENOUS (HUMAN) [Concomitant]
  3. CORTICOSTEROIDS [Concomitant]

REACTIONS (2)
  - DEATH [None]
  - PNEUMONIA [None]
